FAERS Safety Report 6506680-9 (Version None)
Quarter: 2009Q4

REPORT INFORMATION
  Report Type: 
  Country: None (occurrence: None)
  Receive Date: 20091221
  Receipt Date: 20091214
  Transmission Date: 20100525
  Serious: Yes (Other)
  Sender: FDA-Public Use
  Company Number: US-SANOFI-AVENTIS-2009SA009126

PATIENT
  Sex: Female

DRUGS (1)
  1. AMBIEN CR [Suspect]
     Route: 048

REACTIONS (5)
  - IMPAIRED DRIVING ABILITY [None]
  - ROAD TRAFFIC ACCIDENT [None]
  - SLEEP SEX [None]
  - SLEEP-RELATED EATING DISORDER [None]
  - SOMNAMBULISM [None]
